FAERS Safety Report 8715345 (Version 3)
Quarter: 2012Q4

REPORT INFORMATION
  Report Type: 
  Country: US (occurrence: US)
  Receive Date: 20120809
  Receipt Date: 20120926
  Transmission Date: 20130627
  Serious: Yes (Death, Life-Threatening)
  Sender: FDA-Public Use
  Company Number: US-GLAXOSMITHKLINE-A0988792A

PATIENT
  Age: 68 Year
  Sex: Female
  Weight: 56.8 kg

DRUGS (2)
  1. TYKERB [Suspect]
     Indication: BREAST CANCER METASTATIC
     Dosage: 1250MG Per day
     Route: 065
  2. AROMASIN [Concomitant]
     Dosage: 25MG Per day
     Route: 048
     Dates: start: 20111207, end: 201208

REACTIONS (5)
  - Breast cancer metastatic [Fatal]
  - Metastases to central nervous system [Unknown]
  - Metastases to lung [Unknown]
  - Metastases to bone [Unknown]
  - Diarrhoea [Unknown]
